FAERS Safety Report 13704445 (Version 1)
Quarter: 2017Q2

REPORT INFORMATION
  Report Type: Spontaneous
  Country: US (occurrence: US)
  Receive Date: 20170630
  Receipt Date: 20170630
  Transmission Date: 20170830
  Serious: Yes (Hospitalization)
  Sender: FDA-Public Use
  Company Number: PHEH2017US019511

PATIENT

DRUGS (1)
  1. ILARIS [Suspect]
     Active Substance: CANAKINUMAB
     Indication: STILL^S DISEASE
     Dosage: 150 OT, 04 WEEKS
     Route: 058

REACTIONS (2)
  - Juvenile idiopathic arthritis [Recovered/Resolved]
  - Wrong technique in product usage process [Recovered/Resolved]
